FAERS Safety Report 4908621-4 (Version None)
Quarter: 2006Q1

REPORT INFORMATION
  Report Type: 
  Country: None (occurrence: None)
  Receive Date: 20060210
  Receipt Date: 20050920
  Transmission Date: 20060701
  Serious: No
  Sender: FDA-Public Use
  Company Number: US-GLAXOSMITHKLINE-A0575030A

PATIENT
  Age: 50 Year
  Sex: Male

DRUGS (3)
  1. PAXIL [Suspect]
     Indication: DEPRESSION
     Dosage: 12.5MG PER DAY
     Route: 048
     Dates: start: 20050914, end: 20050919
  2. LIPITOR [Concomitant]
  3. NIACIN [Concomitant]

REACTIONS (4)
  - FATIGUE [None]
  - FLUSHING [None]
  - HEART RATE INCREASED [None]
  - MYDRIASIS [None]
